FAERS Safety Report 15103599 (Version 5)
Quarter: 2018Q3

REPORT INFORMATION
  Report Type: Report from Study
  Country: JP (occurrence: JP)
  Receive Date: 20180703
  Receipt Date: 20180920
  Transmission Date: 20181010
  Serious: Yes (Death, Other)
  Sender: FDA-Public Use
  Company Number: JP-JNJFOC-20180636520

PATIENT
  Age: 77 Year
  Sex: Male
  Weight: 60.6 kg

DRUGS (10)
  1. IMBRUVICA [Suspect]
     Active Substance: IBRUTINIB
     Indication: MANTLE CELL LYMPHOMA REFRACTORY
     Route: 048
     Dates: start: 20171218, end: 20171226
  2. IMBRUVICA [Suspect]
     Active Substance: IBRUTINIB
     Indication: MANTLE CELL LYMPHOMA REFRACTORY
     Route: 048
     Dates: start: 20180129, end: 20180413
  3. NEXIUM [Concomitant]
     Active Substance: ESOMEPRAZOLE MAGNESIUM
     Indication: PROPHYLAXIS
     Route: 048
     Dates: start: 20171219, end: 20180413
  4. BAKTAR [Suspect]
     Active Substance: SULFAMETHOXAZOLE\TRIMETHOPRIM
     Indication: PROPHYLAXIS
     Route: 048
     Dates: start: 20171219, end: 20180413
  5. NIFEDIPINE. [Concomitant]
     Active Substance: NIFEDIPINE
     Indication: CHRONIC KIDNEY DISEASE
     Route: 048
     Dates: start: 20171219, end: 20180314
  6. FOSRENOL [Concomitant]
     Active Substance: LANTHANUM CARBONATE
     Indication: CHRONIC KIDNEY DISEASE
     Route: 048
     Dates: start: 20171219, end: 20180413
  7. ARTIST [Concomitant]
     Active Substance: CARVEDILOL
     Indication: CHRONIC KIDNEY DISEASE
     Route: 048
     Dates: start: 20171219, end: 20180413
  8. DECADRON [Concomitant]
     Active Substance: DEXAMETHASONE
     Indication: PROPHYLAXIS
     Route: 048
     Dates: start: 20171219, end: 20180413
  9. AZILVA [Concomitant]
     Active Substance: AZILSARTAN KAMEDOXOMIL
     Indication: CHRONIC KIDNEY DISEASE
     Route: 048
     Dates: start: 20171219, end: 20180314
  10. VALIXA [Suspect]
     Active Substance: VALGANCICLOVIR
     Indication: CHRONIC KIDNEY DISEASE
     Route: 048
     Dates: start: 20171219, end: 20180413

REACTIONS (3)
  - Depressed level of consciousness [Recovered/Resolved]
  - Bone marrow failure [Fatal]
  - Pyrexia [Recovered/Resolved]

NARRATIVE: CASE EVENT DATE: 20171226
